FAERS Safety Report 5154559-X (Version None)
Quarter: 2006Q4

REPORT INFORMATION
  Report Type: 
  Country: None (occurrence: None)
  Receive Date: 20061114
  Receipt Date: 20061027
  Transmission Date: 20070319
  Serious: Yes (Life-Threatening, Hospitalization, Disabling)
  Sender: FDA-Public Use
  Company Number: 2006-272

PATIENT
  Age: 85 Year
  Sex: Male

DRUGS (10)
  1. CITALOPRAM HYDROBROMIDE [Suspect]
     Dosage: 10 MG DAILY
     Dates: start: 20060930, end: 20061012
  2. ASPIRIN [Concomitant]
  3. ATENOLOL [Concomitant]
  4. BENDROFLUMETHIAZIDE [Concomitant]
  5. CANDESARTAN [Concomitant]
  6. DIPYRIDAMOLE [Concomitant]
  7. FOLIC ACID [Concomitant]
  8. GLICLAZIDE [Concomitant]
  9. OMEPRAZOLE [Concomitant]
  10. ROSIGLITAZONE [Concomitant]

REACTIONS (2)
  - CONFUSIONAL STATE [None]
  - INAPPROPRIATE ANTIDIURETIC HORMONE SECRETION [None]
